FAERS Safety Report 10474639 (Version 3)
Quarter: 2015Q1

REPORT INFORMATION
  Report Type: Spontaneous
  Country: JP (occurrence: JP)
  Receive Date: 20140925
  Receipt Date: 20150211
  Transmission Date: 20150720
  Serious: Yes (Disabling, Other)
  Sender: FDA-Public Use
  Company Number: JP-ROCHE-1466020

PATIENT
  Age: 49 Year
  Sex: Male

DRUGS (13)
  1. NEORAL [Suspect]
     Active Substance: CYCLOSPORINE
     Route: 048
     Dates: start: 20120620, end: 20120627
  2. EVEROLIMUS [Concomitant]
     Active Substance: EVEROLIMUS
  3. NEORAL [Suspect]
     Active Substance: CYCLOSPORINE
     Route: 048
     Dates: start: 20120628, end: 20120911
  4. PREDNISOLONE. [Suspect]
     Active Substance: PREDNISOLONE
     Indication: RENAL TRANSPLANT
     Dosage: AMOUNT OF 1 ONCE ADMINISTRATION: 20-60MG
     Route: 048
     Dates: start: 20120606, end: 20120620
  5. NEORAL [Suspect]
     Active Substance: CYCLOSPORINE
     Indication: RENAL TRANSPLANT
     Route: 048
     Dates: start: 20120604, end: 20120611
  6. PREDNISOLONE. [Suspect]
     Active Substance: PREDNISOLONE
     Dosage: AMOUNT OF 1 ONCE ADMINISTRATION: 15-10MG
     Route: 048
     Dates: start: 20120621, end: 20120725
  7. TACROLIMUS HYDRATE [Concomitant]
     Active Substance: TACROLIMUS
     Dosage: DOSAGE IS UNCERTAIN.
     Route: 065
  8. NEORAL [Suspect]
     Active Substance: CYCLOSPORINE
     Route: 048
     Dates: start: 20120912, end: 20121031
  9. CELLCEPT [Suspect]
     Active Substance: MYCOPHENOLATE MOFETIL\MYCOPHENOLATE MOFETIL HYDROCHLORIDE
     Indication: RENAL TRANSPLANT
     Route: 048
     Dates: start: 20120607, end: 20120620
  10. THYMOGLOBULINE [Concomitant]
     Active Substance: LAPINE T-LYMPHOCYTE IMMUNE GLOBULIN
     Route: 065
     Dates: start: 20120915, end: 20120922
  11. PREDNISOLONE. [Suspect]
     Active Substance: PREDNISOLONE
     Route: 048
     Dates: start: 20120725, end: 20121220
  12. CELLCEPT [Suspect]
     Active Substance: MYCOPHENOLATE MOFETIL\MYCOPHENOLATE MOFETIL HYDROCHLORIDE
     Dosage: LAST DOSE PRIOR TO SERIOUS ADVERSE EVENT: 14/SEP/2012
     Route: 048
     Dates: start: 20120621
  13. NEORAL [Suspect]
     Active Substance: CYCLOSPORINE
     Route: 048
     Dates: start: 20120612, end: 20120619

REACTIONS (2)
  - Cytomegalovirus test positive [Unknown]
  - Polyomavirus-associated nephropathy [Recovered/Resolved with Sequelae]

NARRATIVE: CASE EVENT DATE: 20120925
